FAERS Safety Report 21262968 (Version 1)
Quarter: 2022Q3

REPORT INFORMATION
  Report Type: Other
  Country: CN (occurrence: None)
  Receive Date: 20220828
  Receipt Date: 20220828
  Transmission Date: 20221026
  Serious: Yes (Hospitalization, Other)
  Sender: FDA-Public Use
  Company Number: CN-ROCHE-3166933

PATIENT
  Age: 51 Year
  Sex: Male

DRUGS (4)
  1. BEVACIZUMAB [Suspect]
     Active Substance: BEVACIZUMAB
     Indication: Pleural mesothelioma malignant
     Route: 065
  2. PEMBROLIZUMAB [Suspect]
     Active Substance: PEMBROLIZUMAB
     Indication: Pleural mesothelioma malignant
     Route: 065
  3. TAXOL [Suspect]
     Active Substance: PACLITAXEL
     Indication: Pleural mesothelioma malignant
     Route: 065
  4. METHYLPREDNISOLONE [Concomitant]
     Active Substance: METHYLPREDNISOLONE

REACTIONS (2)
  - Disease progression [Unknown]
  - Metastases to liver [Unknown]
